FAERS Safety Report 8229681-1 (Version None)
Quarter: 2012Q1

REPORT INFORMATION
  Report Type: 
  Country: None (occurrence: None)
  Receive Date: 20120322
  Receipt Date: 20120320
  Transmission Date: 20120608
  Serious: Yes (Death, Hospitalization, Other)
  Sender: FDA-Public Use
  Company Number: PHHY2012JM024861

PATIENT
  Age: 88 Year
  Sex: Male

DRUGS (1)
  1. DIOVAN HCT [Suspect]
     Indication: HYPERTENSION
     Dosage: 80/12.5 MG, UNK
     Dates: start: 20080101

REACTIONS (3)
  - DYSPNOEA [None]
  - DEATH [None]
  - PULMONARY OEDEMA [None]
